FAERS Safety Report 23598545 (Version 1)
Quarter: 2024Q1

REPORT INFORMATION
  Report Type: Spontaneous
  Country: BE (occurrence: BE)
  Receive Date: 20240306
  Receipt Date: 20240306
  Transmission Date: 20240410
  Serious: Yes (Hospitalization, Other)
  Sender: FDA-Public Use
  Company Number: BE-GILEAD-2023-0642406

PATIENT
  Sex: Male
  Weight: 79 kg

DRUGS (59)
  1. CARBOPLATIN [Suspect]
     Active Substance: CARBOPLATIN
     Indication: Non-small cell lung cancer metastatic
     Dosage: 410 MILLIGRAM
     Route: 042
     Dates: start: 20230510, end: 20230510
  2. CARBOPLATIN [Suspect]
     Active Substance: CARBOPLATIN
     Dosage: 390 MILLIGRAM
     Route: 042
     Dates: start: 20230621, end: 20230621
  3. CARBOPLATIN [Suspect]
     Active Substance: CARBOPLATIN
     Dosage: 370 MILLIGRAM
     Route: 042
     Dates: start: 20230712, end: 20230712
  4. CARBOPLATIN [Suspect]
     Active Substance: CARBOPLATIN
     Dosage: UNK
     Route: 042
  5. CARBOPLATIN [Suspect]
     Active Substance: CARBOPLATIN
     Dosage: 430 MG
     Route: 042
     Dates: start: 20230531, end: 20230531
  6. PEMETREXED [Suspect]
     Active Substance: PEMETREXED
     Indication: Non-small cell lung cancer metastatic
     Dosage: 1010 MILLIGRAM
     Route: 042
     Dates: start: 20230510, end: 20230510
  7. PEMETREXED [Suspect]
     Active Substance: PEMETREXED
     Dosage: 1010 MILLIGRAM
     Route: 042
     Dates: start: 20230531, end: 20230531
  8. PEMETREXED [Suspect]
     Active Substance: PEMETREXED
     Dosage: 980 MILLIGRAM
     Route: 042
     Dates: start: 20230802, end: 20230802
  9. PEMETREXED [Suspect]
     Active Substance: PEMETREXED
     Dosage: 990 MILLIGRAM
     Route: 042
     Dates: start: 20230621, end: 20230621
  10. PEMETREXED [Suspect]
     Active Substance: PEMETREXED
     Dosage: 980 MILLIGRAM
     Route: 042
     Dates: start: 20230712, end: 20230712
  11. PEMETREXED [Suspect]
     Active Substance: PEMETREXED
     Dosage: 980 MILLIGRAM
     Route: 042
     Dates: start: 20230823, end: 20230823
  12. PEMETREXED [Suspect]
     Active Substance: PEMETREXED
     Dosage: 730 MILLIGRAM
     Route: 042
     Dates: start: 20230913
  13. DOMVANALIMAB [Suspect]
     Active Substance: DOMVANALIMAB
     Indication: Non-small cell lung cancer metastatic
     Dosage: 1200 MILLIGRAM
     Route: 042
     Dates: start: 20230510, end: 20230510
  14. DOMVANALIMAB [Suspect]
     Active Substance: DOMVANALIMAB
     Dosage: 1200 MILLIGRAM
     Route: 042
     Dates: start: 20230823, end: 20230823
  15. DOMVANALIMAB [Suspect]
     Active Substance: DOMVANALIMAB
     Dosage: 1200 MILLIGRAM
     Route: 042
     Dates: start: 20230531, end: 20230531
  16. DOMVANALIMAB [Suspect]
     Active Substance: DOMVANALIMAB
     Dosage: 1200 MILLIGRAM
     Route: 042
     Dates: start: 20230802, end: 20230802
  17. DOMVANALIMAB [Suspect]
     Active Substance: DOMVANALIMAB
     Dosage: 1200 MILLIGRAM
     Route: 042
     Dates: start: 20231025, end: 20231025
  18. DOMVANALIMAB [Suspect]
     Active Substance: DOMVANALIMAB
     Dosage: 1200 MILLIGRAM
     Route: 042
     Dates: start: 20230621, end: 20230621
  19. DOMVANALIMAB [Suspect]
     Active Substance: DOMVANALIMAB
     Dosage: 1200 MILLIGRAM
     Route: 042
     Dates: start: 20231004, end: 20231004
  20. DOMVANALIMAB [Suspect]
     Active Substance: DOMVANALIMAB
     Dosage: 1200 MILLIGRAM
     Route: 042
     Dates: start: 20230913, end: 20230913
  21. DOMVANALIMAB [Suspect]
     Active Substance: DOMVANALIMAB
     Dosage: 1200 MG
     Route: 042
     Dates: start: 20230712, end: 20230712
  22. DOMVANALIMAB [Suspect]
     Active Substance: DOMVANALIMAB
     Dosage: 1200 MG
     Route: 042
     Dates: start: 20231115
  23. ZIMBERELIMAB [Suspect]
     Active Substance: ZIMBERELIMAB
     Indication: Non-small cell lung cancer metastatic
     Dosage: 360 MILLIGRAM
     Route: 042
     Dates: start: 20230510, end: 20230510
  24. ZIMBERELIMAB [Suspect]
     Active Substance: ZIMBERELIMAB
     Dosage: 360 MILLIGRAM
     Route: 042
     Dates: start: 20231025, end: 20231025
  25. ZIMBERELIMAB [Suspect]
     Active Substance: ZIMBERELIMAB
     Dosage: 360 MILLIGRAM
     Route: 042
     Dates: start: 20230802, end: 20230802
  26. ZIMBERELIMAB [Suspect]
     Active Substance: ZIMBERELIMAB
     Dosage: 360 MILLIGRAM
     Route: 042
     Dates: start: 20230531, end: 20230531
  27. ZIMBERELIMAB [Suspect]
     Active Substance: ZIMBERELIMAB
     Dosage: 360 MILLIGRAM
     Route: 042
     Dates: start: 20230823, end: 20230823
  28. ZIMBERELIMAB [Suspect]
     Active Substance: ZIMBERELIMAB
     Dosage: 360 MILLIGRAM
     Route: 042
     Dates: start: 20231004, end: 20231004
  29. ZIMBERELIMAB [Suspect]
     Active Substance: ZIMBERELIMAB
     Dosage: 500 MILLIGRAM
     Route: 042
     Dates: start: 20230913, end: 20230913
  30. ZIMBERELIMAB [Suspect]
     Active Substance: ZIMBERELIMAB
     Dosage: 360 MILLIGRAM
     Route: 042
     Dates: start: 20230621, end: 20230621
  31. ZIMBERELIMAB [Suspect]
     Active Substance: ZIMBERELIMAB
     Dosage: 360 MILLIGRAM
     Route: 042
     Dates: start: 20230712, end: 20230712
  32. ZIMBERELIMAB [Suspect]
     Active Substance: ZIMBERELIMAB
     Dosage: 360 MILLIGRAM
     Route: 042
     Dates: start: 20231115
  33. AMLODIPINE BESYLATE [Concomitant]
     Active Substance: AMLODIPINE BESYLATE
     Indication: Hypertension
     Dosage: UNK
     Route: 048
     Dates: start: 20230904, end: 20230907
  34. ACETAMINOPHEN [Concomitant]
     Active Substance: ACETAMINOPHEN
     Indication: Febrile neutropenia
     Dosage: UNK
     Route: 048
     Dates: start: 20230510
  35. ACETAMINOPHEN [Concomitant]
     Active Substance: ACETAMINOPHEN
     Indication: Bone lesion
     Dosage: UNK
     Route: 042
     Dates: start: 20230918, end: 20230918
  36. VITAMIN D NOS [Concomitant]
     Active Substance: VITAMIN D NOS
     Indication: Prophylaxis
     Dosage: UNK
     Route: 048
     Dates: start: 20180728
  37. DEXAMETHASONE [Concomitant]
     Active Substance: DEXAMETHASONE
     Indication: Prophylaxis
     Dosage: UNK
     Route: 048
     Dates: start: 20230509, end: 20231004
  38. DEXAMETHASONE [Concomitant]
     Active Substance: DEXAMETHASONE
     Dosage: UNK
     Route: 048
     Dates: start: 20230509
  39. MOUTH WASH [Concomitant]
     Indication: Prophylaxis
     Dosage: UNK
     Route: 002
     Dates: start: 20230510
  40. IMODIUM [Concomitant]
     Active Substance: LOPERAMIDE HYDROCHLORIDE
     Indication: Prophylaxis
     Dosage: UNK
     Route: 048
     Dates: start: 20230510
  41. ESOMEPRAZOLE [Concomitant]
     Active Substance: ESOMEPRAZOLE
     Indication: Gastric ulcer
     Dosage: UNK
     Route: 048
     Dates: start: 20230902, end: 20230907
  42. HUMAN RED BLOOD CELL [Concomitant]
     Active Substance: HUMAN RED BLOOD CELL
     Indication: Anaemia
     Dosage: UNK
     Route: 042
     Dates: start: 20230902, end: 20230902
  43. ARANESP [Concomitant]
     Active Substance: DARBEPOETIN ALFA
     Indication: Anaemia
     Dosage: UNK
     Route: 058
     Dates: start: 20230823, end: 20230823
  44. ARANESP [Concomitant]
     Active Substance: DARBEPOETIN ALFA
     Dosage: UNK
     Route: 058
     Dates: start: 20230913
  45. ARANESP [Concomitant]
     Active Substance: DARBEPOETIN ALFA
     Dosage: UNK
     Route: 058
     Dates: start: 20230913, end: 20230913
  46. PEGFILGRASTIM [Concomitant]
     Active Substance: PEGFILGRASTIM
     Indication: Prophylaxis
     Dosage: UNK
     Route: 058
     Dates: start: 20230915, end: 20230915
  47. NEUROBION DC [Concomitant]
     Indication: Premedication
     Dosage: UNK
     Route: 030
     Dates: start: 20230420
  48. STEROPOTASSIUM [Concomitant]
     Indication: Hypokalaemia
     Dosage: UNK
     Route: 048
     Dates: start: 20230907, end: 20230907
  49. COVERAM [Concomitant]
     Active Substance: AMLODIPINE\PERINDOPRIL
     Indication: Hypertension
     Dosage: UNK
     Route: 048
     Dates: start: 202211, end: 20230901
  50. COVERAM [Concomitant]
     Active Substance: AMLODIPINE\PERINDOPRIL
     Dosage: UNK
     Route: 048
     Dates: start: 20230908
  51. TRAMADOL HYDROCHLORIDE [Concomitant]
     Active Substance: TRAMADOL HYDROCHLORIDE
     Indication: Bone lesion
     Dosage: UNK
     Route: 048
     Dates: start: 20230510
  52. TRAMADOL HYDROCHLORIDE [Concomitant]
     Active Substance: TRAMADOL HYDROCHLORIDE
     Dosage: UNK
     Route: 048
     Dates: start: 20230827
  53. VALIUM [Concomitant]
     Active Substance: DIAZEPAM
     Indication: Product used for unknown indication
     Dosage: UNK
     Route: 048
     Dates: start: 20230827
  54. VALIUM [Concomitant]
     Active Substance: DIAZEPAM
     Dosage: UNK
     Route: 048
     Dates: start: 20230827, end: 20230918
  55. MOVICOL [Concomitant]
     Active Substance: POLYETHYLENE GLYCOL 3350\POTASSIUM CHLORIDE\SODIUM BICARBONATE\SODIUM CHLORIDE
     Indication: Product used for unknown indication
     Dosage: UNK
     Route: 048
     Dates: start: 20230907, end: 20230907
  56. ALIZAPRIDE HYDROCHLORIDE [Concomitant]
     Active Substance: ALIZAPRIDE HYDROCHLORIDE
     Indication: Prophylaxis
     Dosage: UNK
     Route: 042
     Dates: start: 20230510, end: 20231005
  57. ALIZAPRIDE HYDROCHLORIDE [Concomitant]
     Active Substance: ALIZAPRIDE HYDROCHLORIDE
     Dosage: UNK
     Route: 042
     Dates: start: 20230802
  58. FOLIC ACID [Concomitant]
     Active Substance: FOLIC ACID
     Indication: Prophylaxis
     Dosage: UNK
     Route: 048
     Dates: start: 20230424, end: 20231005
  59. Pantomed [Concomitant]
     Indication: Gastric ulcer
     Dosage: UNK
     Route: 048
     Dates: start: 20230228

REACTIONS (1)
  - Febrile neutropenia [Recovered/Resolved]

NARRATIVE: CASE EVENT DATE: 20230901
